FAERS Safety Report 9034428 (Version 1)
Quarter: 2013Q1

REPORT INFORMATION
  Report Type: Spontaneous
  Country: US (occurrence: US)
  Receive Date: 20130128
  Receipt Date: 20130128
  Transmission Date: 20140127
  Serious: Yes (Other)
  Sender: FDA-Public Use
  Company Number: US-AMGEN-US079453

PATIENT
  Age: 50 Year
  Sex: Female

DRUGS (7)
  1. ENBREL [Suspect]
     Indication: RHEUMATOID ARTHRITIS
     Dosage: 25 MG, 2 TIMES/WK
     Route: 058
     Dates: start: 19990101, end: 200406
  2. METHOTREXATE [Concomitant]
     Dosage: UNK UNK, UNK
     Dates: start: 20011004
  3. PREDNISONE [Concomitant]
     Dosage: UNK UNK, UNK
     Dates: start: 20011004
  4. PANADEINE CO [Concomitant]
     Dosage: UNK UNK, UNK
     Dates: start: 20011004
  5. FOLIC ACID [Concomitant]
     Dosage: UNK UNK, UNK
     Dates: start: 20011004
  6. THYROXINE [Concomitant]
     Dosage: UNK UNK, UNK
     Dates: start: 20011004
  7. OXAPROZIN [Concomitant]
     Dosage: UNK UNK, UNK
     Dates: start: 20011004

REACTIONS (3)
  - Hypoaesthesia [Recovered/Resolved]
  - Vision blurred [Recovered/Resolved]
  - Headache [Recovered/Resolved]
